FAERS Safety Report 24624666 (Version 1)
Quarter: 2024Q4

REPORT INFORMATION
  Report Type: Spontaneous
  Country: US (occurrence: US)
  Receive Date: 20241115
  Receipt Date: 20241115
  Transmission Date: 20250114
  Serious: Yes (Other)
  Sender: MYLAN
  Company Number: US-MYLANLABS-2024M1101885

PATIENT
  Age: 72 Year
  Sex: Male

DRUGS (4)
  1. BUDESONIDE [Suspect]
     Active Substance: BUDESONIDE
     Indication: Asthma-chronic obstructive pulmonary disease overlap syndrome
     Dosage: UNK, RESPIRATORY (INHALATION)
     Route: 055
  2. FLUTICASONE PROPIONATE\SALMETEROL XINAFOATE [Suspect]
     Active Substance: FLUTICASONE PROPIONATE\SALMETEROL XINAFOATE
     Indication: Asthma-chronic obstructive pulmonary disease overlap syndrome
     Dosage: UNK, RESPIRATORY (INHALATION)
     Route: 055
  3. FLUTICASONE PROPIONATE\SALMETEROL XINAFOATE [Suspect]
     Active Substance: FLUTICASONE PROPIONATE\SALMETEROL XINAFOATE
     Dosage: UNK, DOSE DECREASED, RESPIRATORY (INHALATION)
     Route: 055
  4. MOMETASONE [Suspect]
     Active Substance: MOMETASONE
     Indication: Asthma-chronic obstructive pulmonary disease overlap syndrome
     Dosage: UNK, RESPIRATORY (INHALATION)
     Route: 065

REACTIONS (1)
  - Osteonecrosis [Recovering/Resolving]
